FAERS Safety Report 9444909 (Version 1)
Quarter: 2013Q3

REPORT INFORMATION
  Report Type: Spontaneous
  Country: GB (occurrence: GB)
  Receive Date: 20130729
  Receipt Date: 20130729
  Transmission Date: 20140515
  Serious: Yes (Death)
  Sender: FDA-Public Use
  Company Number: 2013037061

PATIENT
  Age: 39 Year
  Sex: Female

DRUGS (1)
  1. INTRAVENOUS POOLED HUMAN IMMUNOGLOBULIN G (IMMUNE GLOBULIN INTRAVENOUS (HUMAN) 10% LIQUID) [Suspect]
     Indication: STREPTOCOCCAL INFECTION

REACTIONS (2)
  - Drug ineffective for unapproved indication [None]
  - Streptococcal infection [None]
